FAERS Safety Report 12491600 (Version 2)
Quarter: 2016Q3

REPORT INFORMATION
  Report Type: Spontaneous
  Country: US (occurrence: US)
  Receive Date: 20160623
  Receipt Date: 20160818
  Transmission Date: 20161109
  Serious: No
  Sender: FDA-Public Use
  Company Number: US-PFIZER INC-2016285783

PATIENT
  Age: 51 Year
  Sex: Female

DRUGS (2)
  1. IBRANCE [Suspect]
     Active Substance: PALBOCICLIB
     Indication: BREAST CANCER METASTATIC
     Dosage: 125 MG, CYCLIC (EVERY DAY FOR 21 DAYS ON/ 7 DAYS OFF)
     Dates: start: 20160522
  2. LETROZOLE. [Concomitant]
     Active Substance: LETROZOLE
     Dosage: UNK

REACTIONS (1)
  - Abdominal pain [Unknown]
